FAERS Safety Report 4707534-0 (Version None)
Quarter: 2005Q3

REPORT INFORMATION
  Report Type: 
  Country: None (occurrence: None)
  Receive Date: 20050701
  Receipt Date: 20050623
  Transmission Date: 20060218
  Serious: Yes (Life-Threatening, Hospitalization)
  Sender: FDA-Public Use
  Company Number: 2005092973

PATIENT
  Age: 42 Year
  Sex: Male
  Weight: 71.2 kg

DRUGS (2)
  1. SULFASALAZINE [Suspect]
     Indication: POLYARTHRITIS
     Dosage: 2 MG (1 MG, 2 IN 1 D), ORAL
     Route: 048
     Dates: start: 20050418, end: 20050603
  2. IBUPROFEN [Suspect]
     Indication: ILL-DEFINED DISORDER
     Dosage: 1200 MG (400 MG , 3 IN 1 D), ORAL
     Route: 048

REACTIONS (1)
  - NEUTROPENIC SEPSIS [None]
